FAERS Safety Report 6266460-9 (Version None)
Quarter: 2009Q3

REPORT INFORMATION
  Report Type: 
  Country: None (occurrence: None)
  Receive Date: 20090713
  Receipt Date: 20090706
  Transmission Date: 20100115
  Serious: Yes (Other)
  Sender: FDA-Public Use
  Company Number: US-GILEAD-2009-0022719

PATIENT
  Sex: Male
  Weight: 78.542 kg

DRUGS (7)
  1. LETAIRIS [Suspect]
     Indication: PULMONARY ARTERIAL HYPERTENSION
     Route: 048
     Dates: start: 20090701
  2. LETAIRIS [Suspect]
     Route: 048
     Dates: end: 20090521
  3. SPIRONOLACTONE [Concomitant]
     Indication: OEDEMA
  4. LASIX [Concomitant]
     Indication: OEDEMA
  5. SPIRIVA [Concomitant]
     Indication: CHRONIC OBSTRUCTIVE PULMONARY DISEASE
  6. THIAMINE HCL [Concomitant]
  7. FOLIC ACID [Concomitant]
     Indication: HEPATIC CIRRHOSIS

REACTIONS (1)
  - HEPATIC ENZYME INCREASED [None]
